FAERS Safety Report 7268484-1 (Version None)
Quarter: 2010Q4

REPORT INFORMATION
  Report Type: 
  Country: None (occurrence: None)
  Receive Date: 20101206
  Receipt Date: 20101103
  Transmission Date: 20110411
  Serious: No
  Sender: FDA-Public Use
  Company Number: 2010SP058341

PATIENT
  Sex: Male

DRUGS (4)
  1. SAPHRIS [Suspect]
     Indication: PRODUCT USED FOR UNKNOWN INDICATION
  2. DEPAKOTE [Concomitant]
  3. KLONOPIN [Concomitant]
  4. RISPERDAL [Concomitant]

REACTIONS (1)
  - MUSCULOSKELETAL STIFFNESS [None]
